FAERS Safety Report 11044252 (Version 3)
Quarter: 2015Q2

REPORT INFORMATION
  Report Type: Spontaneous
  Country: US (occurrence: US)
  Receive Date: 20150417
  Receipt Date: 20150619
  Transmission Date: 20150821
  Serious: No
  Sender: FDA-Public Use
  Company Number: US-PFIZER INC-2015125943

PATIENT
  Age: 50 Year
  Sex: Female

DRUGS (2)
  1. ADVIL MIGRAINE [Suspect]
     Active Substance: IBUPROFEN
     Indication: MIGRAINE
     Dosage: UNK UNK, 2X/DAY
     Dates: start: 201504
  2. ADVIL MIGRAINE [Suspect]
     Active Substance: IBUPROFEN
     Indication: PAIN

REACTIONS (6)
  - Circumstance or information capable of leading to medication error [Recovered/Resolved]
  - Expired product administered [Recovered/Resolved]
  - Intentional product misuse [Unknown]
  - Product physical issue [Recovered/Resolved]
  - Product commingling [Recovered/Resolved]
  - Drug ineffective [Recovered/Resolved]

NARRATIVE: CASE EVENT DATE: 201504
